FAERS Safety Report 23060911 (Version 4)
Quarter: 2023Q4

REPORT INFORMATION
  Report Type: Spontaneous
  Country: JP (occurrence: JP)
  Receive Date: 20231012
  Receipt Date: 20231109
  Transmission Date: 20240109
  Serious: Yes (Other)
  Sender: FDA-Public Use
  Company Number: JP-SA-2023SA308558

PATIENT
  Age: 70 Year
  Sex: Female

DRUGS (3)
  1. DUPIXENT [Suspect]
     Active Substance: DUPILUMAB
     Indication: Chronic rhinosinusitis with nasal polyps
     Dosage: DAILY DOSE: 300
     Route: 058
     Dates: start: 202304
  2. CELESTAMINE [Concomitant]
     Active Substance: BETAMETHASONE\DEXCHLORPHENIRAMINE MALEATE
     Indication: Chronic sinusitis
     Dosage: DOSING FREQUENCY: TWICE DAILY
     Route: 065
     Dates: start: 2013, end: 202304
  3. PREDNISOLONE [Concomitant]
     Active Substance: PREDNISOLONE
     Indication: Chronic sinusitis
     Dosage: UNK UNK, Q3D
     Route: 065
     Dates: start: 202304

REACTIONS (2)
  - Eosinophilic granulomatosis with polyangiitis [Recovering/Resolving]
  - Arthralgia [Recovering/Resolving]

NARRATIVE: CASE EVENT DATE: 20230701
